FAERS Safety Report 19065631 (Version 1)
Quarter: 2021Q1

REPORT INFORMATION
  Report Type: Spontaneous
  Country: FR (occurrence: FR)
  Receive Date: 20210327
  Receipt Date: 20210327
  Transmission Date: 20210420
  Serious: Yes (Life-Threatening)
  Sender: FDA-Public Use
  Company Number: FR-ACCORD-220500

PATIENT
  Age: 79 Year
  Sex: Male
  Weight: 80 kg

DRUGS (3)
  1. HALDOL [Suspect]
     Active Substance: HALOPERIDOL
     Route: 048
     Dates: start: 20200811, end: 20200811
  2. CLOZAPINE. [Suspect]
     Active Substance: CLOZAPINE
     Route: 048
     Dates: start: 20200811, end: 20200811
  3. SILODYX [Concomitant]
     Active Substance: SILODOSIN
     Route: 048
     Dates: start: 20200811, end: 20200811

REACTIONS (2)
  - Poisoning deliberate [Unknown]
  - Coma [Recovering/Resolving]

NARRATIVE: CASE EVENT DATE: 20200811
